FAERS Safety Report 25859317 (Version 1)
Quarter: 2025Q3

REPORT INFORMATION
  Report Type: Report from Study
  Country: US (occurrence: US)
  Receive Date: 20250929
  Receipt Date: 20250929
  Transmission Date: 20251021
  Serious: Yes (Hospitalization)
  Sender: ALEXION PHARMACEUTICALS
  Company Number: US-AstraZeneca-CH-00959325A

PATIENT
  Age: 67 Year
  Sex: Male
  Weight: 92 kg

DRUGS (1)
  1. ACALABRUTINIB [Suspect]
     Active Substance: ACALABRUTINIB
     Indication: Mantle cell lymphoma
     Dosage: 100 MILLIGRAM, QD

REACTIONS (4)
  - Haematemesis [Recovering/Resolving]
  - Haematochezia [Recovering/Resolving]
  - Pneumonia [Recovering/Resolving]
  - Haemoptysis [Recovering/Resolving]
